FAERS Safety Report 8200127-2 (Version None)
Quarter: 2012Q1

REPORT INFORMATION
  Report Type: 
  Country: None (occurrence: None)
  Receive Date: 20120309
  Receipt Date: 20120309
  Transmission Date: 20120608
  Serious: Yes (Life-Threatening, Hospitalization)
  Sender: FDA-Public Use
  Company Number: None

PATIENT
  Sex: Male
  Weight: 65.7716 kg

DRUGS (1)
  1. ADVIL CONGESTION RELIEF [Suspect]
     Dosage: 1-TAB DAILY 1 DAILY

REACTIONS (5)
  - NAUSEA [None]
  - DIZZINESS [None]
  - DYSPNOEA [None]
  - VOMITING [None]
  - BLOOD PRESSURE DECREASED [None]
